FAERS Safety Report 17159078 (Version 10)
Quarter: 2020Q4

REPORT INFORMATION
  Report Type: Report from Study
  Country: JP (occurrence: JP)
  Receive Date: 20191216
  Receipt Date: 20201209
  Transmission Date: 20210113
  Serious: Yes (Death, Other)
  Sender: FDA-Public Use
  Company Number: JP-ROCHE-2356628

PATIENT
  Age: 77 Year
  Sex: Female
  Weight: 43 kg

DRUGS (34)
  1. POLATUZUMAB VEDOTIN. [Suspect]
     Active Substance: POLATUZUMAB VEDOTIN
     Indication: DIFFUSE LARGE B-CELL LYMPHOMA
     Dosage: CYCLE1 DAY1, DOSE: 1.8 MG/KG
     Route: 042
     Dates: start: 20190326, end: 20190326
  2. POLATUZUMAB VEDOTIN. [Suspect]
     Active Substance: POLATUZUMAB VEDOTIN
     Dosage: CYCLE2 DAY1
     Route: 042
     Dates: start: 20190416, end: 20190416
  3. RITUXIMAB. [Suspect]
     Active Substance: RITUXIMAB
     Dosage: CYCLE3 DAY1
     Route: 041
     Dates: start: 20190509, end: 20190509
  4. RITUXIMAB. [Suspect]
     Active Substance: RITUXIMAB
     Dosage: CYCLE4 DAY1
     Route: 041
     Dates: start: 20190530, end: 20190530
  5. BENDAMUSTINE [Suspect]
     Active Substance: BENDAMUSTINE
     Dosage: CYCLE2 DAY1
     Route: 042
     Dates: start: 20190416, end: 20190416
  6. BENDAMUSTINE [Suspect]
     Active Substance: BENDAMUSTINE
     Dosage: CYCLE5 DAY2
     Route: 042
     Dates: start: 20190621, end: 20190621
  7. BENDAMUSTINE [Suspect]
     Active Substance: BENDAMUSTINE
     Dosage: CYCLE6 DAY2
     Route: 042
     Dates: start: 20190712, end: 20190712
  8. MAGNESIUM OXIDE. [Concomitant]
     Active Substance: MAGNESIUM OXIDE
     Indication: CONSTIPATION
     Dosage: 660 MG
     Route: 048
     Dates: start: 2016
  9. RITUXIMAB. [Suspect]
     Active Substance: RITUXIMAB
     Dosage: CYCLE2 DAY1
     Route: 041
     Dates: start: 20190416, end: 20190416
  10. RITUXIMAB. [Suspect]
     Active Substance: RITUXIMAB
     Dosage: CYCLE6 DAY1
     Route: 041
     Dates: start: 20190711, end: 20190711
  11. BENDAMUSTINE [Suspect]
     Active Substance: BENDAMUSTINE
     Dosage: CYCLE4 DAY1
     Route: 042
     Dates: start: 20190530, end: 20190530
  12. DEPAS [ETIZOLAM] [Concomitant]
     Active Substance: ETIZOLAM
     Indication: INSOMNIA
     Route: 048
     Dates: start: 20191120
  13. POLATUZUMAB VEDOTIN. [Suspect]
     Active Substance: POLATUZUMAB VEDOTIN
     Dosage: CYCLE6 DAY1
     Route: 042
     Dates: start: 20190711, end: 20190711
  14. RITUXIMAB. [Suspect]
     Active Substance: RITUXIMAB
     Indication: DIFFUSE LARGE B-CELL LYMPHOMA
     Dosage: CYCLE1 DAY1 (DOSE 375 MG/M2)
     Route: 041
     Dates: start: 20190325, end: 20190325
  15. BENDAMUSTINE [Suspect]
     Active Substance: BENDAMUSTINE
     Dosage: CYCLE5 DAY1
     Route: 042
     Dates: start: 20190620, end: 20190620
  16. FLUNITRAZEPAM [Concomitant]
     Active Substance: FLUNITRAZEPAM
     Indication: INSOMNIA
     Route: 048
     Dates: start: 20190902
  17. BENDAMUSTINE [Suspect]
     Active Substance: BENDAMUSTINE
     Dosage: CYCLE1 DAY2
     Route: 042
     Dates: start: 20190327, end: 20190327
  18. BENDAMUSTINE [Suspect]
     Active Substance: BENDAMUSTINE
     Dosage: CYCLE4 DAY2
     Route: 042
     Dates: start: 20190531, end: 20190531
  19. DAIPHEN [Concomitant]
     Active Substance: SULFAMETHOXAZOLE\TRIMETHOPRIM
     Indication: INFECTION PROPHYLAXIS
     Route: 048
     Dates: start: 20191016
  20. POLATUZUMAB VEDOTIN. [Suspect]
     Active Substance: POLATUZUMAB VEDOTIN
     Dosage: CYCLE3 DAY1
     Route: 042
     Dates: start: 20190509, end: 20190509
  21. POLATUZUMAB VEDOTIN. [Suspect]
     Active Substance: POLATUZUMAB VEDOTIN
     Dosage: CYCLE4 DAY1
     Route: 042
     Dates: start: 20190530, end: 20190530
  22. BENDAMUSTINE [Suspect]
     Active Substance: BENDAMUSTINE
     Dosage: CYCLE3 DAY1
     Route: 042
     Dates: start: 20190509, end: 20190509
  23. BENDAMUSTINE [Suspect]
     Active Substance: BENDAMUSTINE
     Dosage: CYCLE3 DAY2
     Route: 042
     Dates: start: 20190510, end: 20190510
  24. BENDAMUSTINE [Suspect]
     Active Substance: BENDAMUSTINE
     Dosage: CYCLE6 DAY1
     Route: 042
     Dates: start: 20190711, end: 20190711
  25. BONALON [Concomitant]
     Active Substance: ALENDRONATE SODIUM
     Indication: OSTEOPOROSIS
     Route: 048
     Dates: start: 20191023
  26. SELTOUCH [Concomitant]
     Active Substance: FELBINAC
     Indication: BACK PAIN
     Route: 062
     Dates: start: 20190926
  27. POLATUZUMAB VEDOTIN. [Suspect]
     Active Substance: POLATUZUMAB VEDOTIN
     Dosage: CYCLE5 DAY1
     Route: 042
     Dates: start: 20190620, end: 20190620
  28. BENDAMUSTINE [Suspect]
     Active Substance: BENDAMUSTINE
     Indication: DIFFUSE LARGE B-CELL LYMPHOMA
     Dosage: CYCLE1 DAY1, DOSE: 90 MG/M2 EVERY 1.5 WEEKS
     Route: 042
     Dates: start: 20190326, end: 20190326
  29. BENDAMUSTINE [Suspect]
     Active Substance: BENDAMUSTINE
     Dosage: CYCLE2 DAY2
     Route: 042
     Dates: start: 20190417, end: 20190417
  30. LANSOPRAZOLE. [Concomitant]
     Active Substance: LANSOPRAZOLE
     Indication: GASTRITIS PROPHYLAXIS
     Route: 048
     Dates: start: 20191023
  31. ZOLPIDEM TARTRATE. [Concomitant]
     Active Substance: ZOLPIDEM TARTRATE
     Indication: INSOMNIA
     Route: 048
     Dates: start: 20190902
  32. ACICLOVIR [Concomitant]
     Active Substance: ACYCLOVIR
     Indication: ANTIVIRAL PROPHYLAXIS
     Route: 048
     Dates: start: 20190808
  33. RITUXIMAB. [Suspect]
     Active Substance: RITUXIMAB
     Dosage: CYCLE5 DAY1
     Route: 041
     Dates: start: 20190620, end: 20190620
  34. SODIUM PICOSULFATE MONOHYDRATE [Concomitant]
     Active Substance: SODIUM PICOSULFATE MONOHYDRATE
     Indication: CONSTIPATION
     Route: 048
     Dates: start: 20191108

REACTIONS (4)
  - Lymphoproliferative disorder [Recovering/Resolving]
  - White blood cell count decreased [Recovered/Resolved]
  - Neutrophil count decreased [Recovered/Resolved]
  - Death [Fatal]

NARRATIVE: CASE EVENT DATE: 20190606
